FAERS Safety Report 15004882 (Version 1)
Quarter: 2018Q2

REPORT INFORMATION
  Report Type: Spontaneous
  Country: US (occurrence: US)
  Receive Date: 20180613
  Receipt Date: 20180613
  Transmission Date: 20180711
  Serious: Yes (Hospitalization)
  Sender: FDA-Public Use
  Company Number: US-TARO PHARMACEUTICALS USA.,INC-2018SUN00302

PATIENT
  Age: 36 Year
  Sex: Female

DRUGS (2)
  1. OXYCODONE [Concomitant]
     Active Substance: OXYCODONE
     Indication: PAIN
     Dosage: 3-4 TABLET, DAILY
     Route: 065
  2. ACETAMINOPHEN. [Suspect]
     Active Substance: ACETAMINOPHEN
     Indication: PAIN
     Dosage: UNK UNK, DAILY
     Route: 065

REACTIONS (4)
  - Pyroglutamate increased [Recovered/Resolved]
  - Cachexia [Unknown]
  - Respiratory distress [Unknown]
  - Metabolic acidosis [Recovered/Resolved]
